FAERS Safety Report 16716167 (Version 11)
Quarter: 2020Q2

REPORT INFORMATION
  Report Type: Spontaneous
  Country: PL (occurrence: PL)
  Receive Date: 20190819
  Receipt Date: 20200629
  Transmission Date: 20200713
  Serious: Yes (Death, Life-Threatening, Hospitalization, Other)
  Sender: FDA-Public Use
  Company Number: PL-PFIZER INC-2019354639

PATIENT
  Age: 46 Year
  Sex: Female

DRUGS (44)
  1. OLANZAPINE. [Interacting]
     Active Substance: OLANZAPINE
     Dosage: UNK
     Route: 048
  2. AMOXICILLIN AND CLAVULANATE POTASSIUM [Interacting]
     Active Substance: AMOXICILLIN\CLAVULANATE POTASSIUM
     Indication: BACTERIAL TEST POSITIVE
     Dosage: UNK
     Route: 065
  3. ITOPRIDE [Interacting]
     Active Substance: ITOPRIDE
     Indication: GASTROOESOPHAGEAL REFLUX DISEASE
     Dosage: 50 MILLIGRAM, TID
     Route: 048
  4. ITOPRIDE [Interacting]
     Active Substance: ITOPRIDE
     Indication: REFLUX GASTRITIS
     Dosage: 50 MG, QD
     Route: 048
  5. ITOPRIDE [Interacting]
     Active Substance: ITOPRIDE
     Dosage: UNK
     Route: 065
  6. CIPROFLOXACIN. [Interacting]
     Active Substance: CIPROFLOXACIN
     Indication: BACTERIAL TEST POSITIVE
     Dosage: UNK
     Route: 065
  7. CIPROFLOXACIN. [Interacting]
     Active Substance: CIPROFLOXACIN
     Indication: TRIMETHYLAMINURIA
  8. LEVOFLOXACIN. [Interacting]
     Active Substance: LEVOFLOXACIN
     Indication: BACTERIAL INFECTION
  9. NIFUROXAZIDE [Interacting]
     Active Substance: NIFUROXAZIDE
     Indication: TRIMETHYLAMINURIA
  10. CEFUROXIME AXETIL. [Interacting]
     Active Substance: CEFUROXIME AXETIL
     Indication: ANTIBIOTIC THERAPY
     Dosage: 50 MILLIGRAM, QD
     Route: 048
  11. AMOXICILLIN AND CLAVULANATE POTASSIUM [Interacting]
     Active Substance: AMOXICILLIN\CLAVULANATE POTASSIUM
     Indication: BACTERIAL TEST
  12. TRIMETHOPRIM SULFAMETHOXAZOLE [Interacting]
     Active Substance: SULFAMETHOXAZOLE\TRIMETHOPRIM
     Indication: URINARY TRACT INFECTION
  13. TRIMETHOPRIM SULFAMETHOXAZOLE [Interacting]
     Active Substance: SULFAMETHOXAZOLE\TRIMETHOPRIM
     Indication: TRIMETHYLAMINURIA
  14. ARIPIPRAZOLE. [Concomitant]
     Active Substance: ARIPIPRAZOLE
     Dosage: UNK
  15. CEFUROXIME AXETIL. [Interacting]
     Active Substance: CEFUROXIME AXETIL
     Indication: BACTERIURIA
  16. OLANZAPINE. [Interacting]
     Active Substance: OLANZAPINE
     Indication: BIPOLAR DISORDER
     Dosage: 10 MILLIGRAM, QD
     Route: 048
  17. AMOXICILLIN AND CLAVULANATE POTASSIUM [Interacting]
     Active Substance: AMOXICILLIN\CLAVULANATE POTASSIUM
     Indication: URINARY TRACT INFECTION
  18. CIPROFLOXACIN. [Interacting]
     Active Substance: CIPROFLOXACIN
     Indication: URINARY TRACT INFECTION
  19. LEVOFLOXACIN. [Interacting]
     Active Substance: LEVOFLOXACIN
     Indication: BACTERIAL TEST POSITIVE
  20. TRIMETHOPRIM SULFAMETHOXAZOLE [Interacting]
     Active Substance: SULFAMETHOXAZOLE\TRIMETHOPRIM
     Indication: ANTIBIOTIC THERAPY
     Dosage: UNK
     Route: 065
  21. TRIMETHOPRIM SULFAMETHOXAZOLE [Interacting]
     Active Substance: SULFAMETHOXAZOLE\TRIMETHOPRIM
     Indication: BACTERIAL INFECTION
  22. TRIMETHOPRIM SULFAMETHOXAZOLE [Interacting]
     Active Substance: SULFAMETHOXAZOLE\TRIMETHOPRIM
     Indication: BACTERIURIA
  23. PANTOPRAZOLE [Interacting]
     Active Substance: PANTOPRAZOLE
     Indication: REFLUX GASTRITIS
     Dosage: 10 MILLIGRAM, QD
     Route: 048
  24. CEFUROXIME AXETIL. [Interacting]
     Active Substance: CEFUROXIME AXETIL
     Indication: BACTERIAL INFECTION
  25. LEVOFLOXACIN. [Interacting]
     Active Substance: LEVOFLOXACIN
     Indication: BACTERIURIA
  26. LEVOFLOXACIN. [Interacting]
     Active Substance: LEVOFLOXACIN
     Indication: TRIMETHYLAMINURIA
  27. AMOXICILLIN AND CLAVULANATE POTASSIUM [Interacting]
     Active Substance: AMOXICILLIN\CLAVULANATE POTASSIUM
     Indication: BACTERIURIA
  28. ARIPIPRAZOLE. [Interacting]
     Active Substance: ARIPIPRAZOLE
     Dosage: UNK
     Route: 048
  29. CIPROFLOXACIN. [Interacting]
     Active Substance: CIPROFLOXACIN
     Indication: ANTIBIOTIC THERAPY
     Dosage: UNK
     Route: 065
  30. NIFUROXAZIDE [Interacting]
     Active Substance: NIFUROXAZIDE
     Indication: DIARRHOEA
     Dosage: UNK
     Route: 065
  31. NIFUROXAZIDE [Interacting]
     Active Substance: NIFUROXAZIDE
     Indication: ANTIBIOTIC THERAPY
  32. ARIPIPRAZOLE. [Concomitant]
     Active Substance: ARIPIPRAZOLE
     Indication: BIPOLAR DISORDER
     Dosage: 7.5 MILLIGRAM, QD
     Route: 048
  33. PANTOPRAZOLE [Suspect]
     Active Substance: PANTOPRAZOLE
     Indication: GASTROOESOPHAGEAL REFLUX DISEASE
     Dosage: 40 MILLIGRAM, QD
     Route: 048
  34. CEFUROXIME AXETIL. [Interacting]
     Active Substance: CEFUROXIME AXETIL
     Indication: TRIMETHYLAMINURIA
  35. CIPROFLOXACIN. [Interacting]
     Active Substance: CIPROFLOXACIN
     Indication: BACTERIAL TEST POSITIVE
  36. NIFUROXAZIDE [Interacting]
     Active Substance: NIFUROXAZIDE
     Indication: ABDOMINAL PAIN
  37. NIFUROXAZIDE [Interacting]
     Active Substance: NIFUROXAZIDE
     Indication: URINARY TRACT INFECTION
  38. ARIPIPRAZOLE. [Interacting]
     Active Substance: ARIPIPRAZOLE
     Indication: BIPOLAR DISORDER
     Dosage: 7.5 MILLIGRAM, QD
     Route: 048
  39. CIPROFLOXACIN. [Interacting]
     Active Substance: CIPROFLOXACIN
     Indication: BACTERIURIA
  40. LEVOFLOXACIN. [Interacting]
     Active Substance: LEVOFLOXACIN
     Indication: ANTIBIOTIC THERAPY
     Dosage: UNK
     Route: 065
  41. AMOXICILLIN/CLAVULANIC ACID [Interacting]
     Active Substance: AMOXICILLIN\CLAVULANIC ACID
     Indication: ANTIBIOTIC THERAPY
     Dosage: UNK
     Route: 065
  42. ITOPRIDE [Concomitant]
     Active Substance: ITOPRIDE
     Indication: BIPOLAR DISORDER
     Dosage: 150 MILLIGRAM, QD
     Route: 065
  43. CEFUROXIME AXETIL. [Interacting]
     Active Substance: CEFUROXIME AXETIL
     Indication: URINARY TRACT INFECTION
  44. ITOPRIDE [Interacting]
     Active Substance: ITOPRIDE
     Dosage: 150 MILLIGRAM, QD
     Route: 065

REACTIONS (24)
  - Pyrexia [Fatal]
  - Drug ineffective [Fatal]
  - Trimethylaminuria [Fatal]
  - Megacolon [Fatal]
  - Drug resistance [Fatal]
  - Condition aggravated [Fatal]
  - Peritonitis [Fatal]
  - Inhibitory drug interaction [Fatal]
  - Abdominal pain upper [Fatal]
  - Urine odour abnormal [Not Recovered/Not Resolved]
  - Breath odour [Fatal]
  - Taste disorder [Not Recovered/Not Resolved]
  - Drug interaction [Fatal]
  - Dyspepsia [Fatal]
  - White blood cells urine positive [Fatal]
  - Dysbiosis [Fatal]
  - Bacterial test positive [Fatal]
  - Oral discomfort [Fatal]
  - Parosmia [Fatal]
  - Gastrooesophageal reflux disease [Fatal]
  - Pseudomembranous colitis [Fatal]
  - Clostridium difficile infection [Fatal]
  - Intestinal perforation [Fatal]
  - Diarrhoea [Fatal]
